FAERS Safety Report 5538059-0 (Version None)
Quarter: 2007Q4

REPORT INFORMATION
  Report Type: 
  Country: None (occurrence: None)
  Receive Date: 20071207
  Receipt Date: 20071204
  Transmission Date: 20080405
  Serious: Yes (Other)
  Sender: FDA-Public Use
  Company Number: US-BOEHRINGER INGELHEIM PHARMACEUTICALS, INC.-2005-BP-18506BP

PATIENT

DRUGS (1)
  1. PERSANTINE [Suspect]
     Route: 042

REACTIONS (1)
  - EXTRAVASATION [None]
